FAERS Safety Report 10261219 (Version 1)
Quarter: 2014Q2

REPORT INFORMATION
  Report Type: Report from Study
  Country: US (occurrence: None)
  Receive Date: 20140623
  Receipt Date: 20140623
  Transmission Date: 20141212
  Serious: Yes (Hospitalization)
  Sender: FDA-Public Use
  Company Number: 2392859

PATIENT
  Age: 61 Year
  Sex: Female
  Weight: 65.32 kg

DRUGS (3)
  1. PENTOSTATINE FOR INJECTION (NIPENT) (PENTOSTATIN) [Suspect]
     Indication: CHRONIC LYMPHOCYTIC LEUKAEMIA
     Dates: end: 20120723
  2. CYCLOPHOSPHAMIDE [Suspect]
     Indication: CHRONIC LYMPHOCYTIC LEUKAEMIA
     Dates: end: 20120723
  3. RITUXIMAB [Suspect]
     Indication: CHRONIC LYMPHOCYTIC LEUKAEMIA
     Dates: end: 20120723

REACTIONS (4)
  - Lymphopenia [None]
  - Skin infection [None]
  - Neutropenia [None]
  - White blood cell count decreased [None]
